FAERS Safety Report 10167248 (Version 1)
Quarter: 2014Q2

REPORT INFORMATION
  Report Type: Spontaneous
  Country: US (occurrence: US)
  Receive Date: 20140512
  Receipt Date: 20140512
  Transmission Date: 20141212
  Serious: Yes (Other)
  Sender: FDA-Public Use
  Company Number: US-PFIZER INC-2014129463

PATIENT
  Age: 50 Year
  Sex: Female
  Weight: 72.56 kg

DRUGS (4)
  1. LYRICA [Suspect]
     Indication: NEURALGIA
     Dosage: UNK
     Dates: start: 2007
  2. LYRICA [Suspect]
     Dosage: 225 MG, DAILY
     Dates: start: 2012
  3. SYNTHROID [Concomitant]
     Indication: THYROID DISORDER
     Dosage: UNK
  4. ARMOUR THYROID [Concomitant]
     Indication: THYROID DISORDER
     Dosage: UNK

REACTIONS (1)
  - Chronic gastritis [Not Recovered/Not Resolved]
